FAERS Safety Report 7914088-4 (Version None)
Quarter: 2011Q4

REPORT INFORMATION
  Report Type: 
  Country: None (occurrence: None)
  Receive Date: 20111115
  Receipt Date: 20111104
  Transmission Date: 20120403
  Serious: Yes (Hospitalization)
  Sender: FDA-Public Use
  Company Number: US-BAYER-201034992NA

PATIENT
  Age: 36 Year
  Sex: Female
  Weight: 63.492 kg

DRUGS (4)
  1. DENAVIR [Concomitant]
  2. DROSPIRENONE AND ETHINYL ESTRADIOL [Suspect]
     Indication: CONTRACEPTION
     Route: 048
  3. VALTREX [Concomitant]
  4. YASMIN [Suspect]
     Indication: CONTRACEPTION
     Dosage: UNK
     Route: 048
     Dates: start: 20040101, end: 20070101

REACTIONS (8)
  - ABDOMINAL DISTENSION [None]
  - DIARRHOEA [None]
  - DYSPEPSIA [None]
  - DEPRESSION [None]
  - CHOLECYSTECTOMY [None]
  - FLATULENCE [None]
  - CONSTIPATION [None]
  - ANXIETY [None]
